FAERS Safety Report 9246706 (Version 1)
Quarter: 2013Q2

REPORT INFORMATION
  Report Type: Spontaneous
  Country: US (occurrence: US)
  Receive Date: 20130422
  Receipt Date: 20130422
  Transmission Date: 20140414
  Serious: No
  Sender: FDA-Public Use
  Company Number: US-ASTRAZENECA-2012SE21638

PATIENT
  Age: 84 Year
  Sex: Male

DRUGS (1)
  1. SYMBICORT PMDI [Suspect]
     Route: 055

REACTIONS (3)
  - Cardiac disorder [Unknown]
  - Lung disorder [Unknown]
  - General physical condition abnormal [Unknown]
